FAERS Safety Report 7793462-3 (Version None)
Quarter: 2011Q4

REPORT INFORMATION
  Report Type: 
  Country: None (occurrence: None)
  Receive Date: 20111003
  Receipt Date: 20110929
  Transmission Date: 20120403
  Serious: Yes (Death, Other)
  Sender: FDA-Public Use
  Company Number: PHHY2011DK82989

PATIENT
  Sex: Female
  Weight: 95 kg

DRUGS (2)
  1. LEVONORGESTREL AND ETHINYL ESTRADIOL [Suspect]
     Indication: ORAL CONTRACEPTION
     Dosage: UNK
     Route: 048
     Dates: start: 20070101
  2. LEVONORGESTREL AND ETHINYL ESTRADIOL [Suspect]
     Dosage: DOSIS: 1 TABLET DAGLIGT, STYRKE: 0,15 + 0,03 MG
     Route: 048
     Dates: start: 20070101

REACTIONS (8)
  - ACUTE MYOCARDIAL INFARCTION [None]
  - CAROTID ARTERY THROMBOSIS [None]
  - CHEST PAIN [None]
  - CARDIAC ARREST [None]
  - EPIGASTRIC DISCOMFORT [None]
  - ARTERIOSCLEROSIS CORONARY ARTERY [None]
  - THROMBOSIS [None]
  - ABDOMINAL PAIN UPPER [None]
